FAERS Safety Report 5975146-7 (Version None)
Quarter: 2008Q4

REPORT INFORMATION
  Report Type: 
  Country: None (occurrence: None)
  Receive Date: 20081202
  Receipt Date: 20080905
  Transmission Date: 20090506
  Serious: No
  Sender: FDA-Public Use
  Company Number: US-ABBOTT-08P-163-0456877-00

PATIENT
  Sex: Female

DRUGS (1)
  1. LUPRON DEPOT [Suspect]
     Indication: ENDOMETRIOSIS
     Route: 050
     Dates: start: 20050901, end: 20060201

REACTIONS (18)
  - ACNE [None]
  - AFFECT LABILITY [None]
  - AMNESIA [None]
  - ANXIETY [None]
  - ARTHRALGIA [None]
  - BLADDER DISORDER [None]
  - BLINDNESS [None]
  - BONE DENSITY DECREASED [None]
  - BONE PAIN [None]
  - DEPRESSION [None]
  - FATIGUE [None]
  - HOT FLUSH [None]
  - INJURY [None]
  - INTERVERTEBRAL DISC DEGENERATION [None]
  - INTERVERTEBRAL DISC PROTRUSION [None]
  - NERVOUSNESS [None]
  - PAIN [None]
  - SLEEP DISORDER [None]
